FAERS Safety Report 4934030-8 (Version None)
Quarter: 2006Q1

REPORT INFORMATION
  Report Type: 
  Country: None (occurrence: None)
  Receive Date: 20060303
  Receipt Date: 20060220
  Transmission Date: 20060701
  Serious: Yes (Other)
  Sender: FDA-Public Use
  Company Number: HQWYE933022FEB06

PATIENT
  Age: 67 Year
  Sex: Female

DRUGS (6)
  1. AMIODARONE HCL [Suspect]
     Dosage: SEE IMAGE, INTRAVENOUS
     Route: 042
  2. AMBIEN [Suspect]
     Indication: INSOMNIA
  3. AMBIEN [Suspect]
     Indication: SLEEP DISORDER
  4. CAPTOPRIL [Concomitant]
  5. FUROSEMIDE [Concomitant]
  6. WARFARIN SODIUM [Concomitant]

REACTIONS (6)
  - DRUG INTERACTION [None]
  - ECHOCARDIOGRAM ABNORMAL [None]
  - EJECTION FRACTION DECREASED [None]
  - ELECTROCARDIOGRAM QT CORRECTED INTERVAL PROLONGED [None]
  - TORSADE DE POINTES [None]
  - VENTRICULAR FIBRILLATION [None]
